FAERS Safety Report 23453409 (Version 2)
Quarter: 2024Q1

REPORT INFORMATION
  Report Type: Spontaneous
  Country: US (occurrence: US)
  Receive Date: 20240129
  Receipt Date: 20240311
  Transmission Date: 20240410
  Serious: Yes (Other)
  Sender: FDA-Public Use
  Company Number: US-TEVA-VS-3135046

PATIENT
  Age: 39 Year
  Sex: Female

DRUGS (9)
  1. ETOPOSIDE [Suspect]
     Active Substance: ETOPOSIDE
     Indication: Adrenocortical carcinoma
     Dosage: COMPLETED ONE MONTH
     Route: 065
  2. ETOPOSIDE [Suspect]
     Active Substance: ETOPOSIDE
     Indication: Adrenocortical carcinoma
     Dosage: EDP-MITOTANE, COMPLETED 4 CYCLES
     Route: 065
  3. IPILIMUMAB [Suspect]
     Active Substance: IPILIMUMAB
     Indication: Adrenocortical carcinoma
     Dosage: TWO CYCLES
     Route: 065
  4. RUCAPARIB [Suspect]
     Active Substance: RUCAPARIB
     Indication: Adrenocortical carcinoma
     Route: 065
  5. CISPLATIN [Suspect]
     Active Substance: CISPLATIN
     Indication: Adrenocortical carcinoma
     Dosage: EDP-MITOTANE, COMPLETED 4 CYCLES
     Route: 065
  6. DOXORUBICIN [Suspect]
     Active Substance: DOXORUBICIN
     Indication: Adrenocortical carcinoma
     Dosage: EDP-MITOTANE, COMPLETED 4 CYCLES
     Route: 065
  7. METYRAPONE [Concomitant]
     Active Substance: METYRAPONE
     Indication: Cortisol free urine increased
     Route: 065
  8. NIVOLUMAB [Suspect]
     Active Substance: NIVOLUMAB
     Indication: Adrenocortical carcinoma
     Dosage: TWO CYCLES
     Route: 065
  9. MITOTANE [Suspect]
     Active Substance: MITOTANE
     Indication: Adrenocortical carcinoma
     Dosage: EDP-MITOTANE, COMPLETED 4 CYCLES
     Route: 065

REACTIONS (4)
  - Myocarditis [Unknown]
  - Drug ineffective [Unknown]
  - Treatment noncompliance [Unknown]
  - Drug intolerance [Unknown]
